FAERS Safety Report 13918083 (Version 2)
Quarter: 2017Q4

REPORT INFORMATION
  Report Type: Report from Study
  Country: US (occurrence: US)
  Receive Date: 20170829
  Receipt Date: 20171121
  Transmission Date: 20180320
  Serious: Yes (Other)
  Sender: FDA-Public Use
  Company Number: US-JNJFOC-20170824693

PATIENT
  Age: 54 Year
  Sex: Male

DRUGS (3)
  1. DARZALEX [Suspect]
     Active Substance: DARATUMUMAB
     Indication: PLASMA CELL MYELOMA
     Route: 042
     Dates: start: 201610
  2. POMALYST [Concomitant]
     Active Substance: POMALIDOMIDE
  3. DARZALEX [Suspect]
     Active Substance: DARATUMUMAB
     Indication: PLASMA CELL MYELOMA
     Route: 042
     Dates: start: 201701

REACTIONS (6)
  - Tremor [Recovered/Resolved]
  - Incorrect drug administration duration [Unknown]
  - Infusion related reaction [Unknown]
  - Dyspnoea [Unknown]
  - Throat tightness [Recovered/Resolved]
  - Cold sweat [Unknown]

NARRATIVE: CASE EVENT DATE: 201610
